FAERS Safety Report 19880133 (Version 1)
Quarter: 2021Q3

REPORT INFORMATION
  Report Type: Spontaneous
  Country: US (occurrence: US)
  Receive Date: 20210924
  Receipt Date: 20210924
  Transmission Date: 20211014
  Serious: No
  Sender: FDA-Public Use
  Company Number: US-PFIZER INC-2017035021

PATIENT
  Age: 60 Year
  Sex: Female

DRUGS (2)
  1. CHANTIX [Suspect]
     Active Substance: VARENICLINE TARTRATE
     Indication: SMOKING CESSATION THERAPY
     Dosage: STARTER PACK
     Dates: start: 2006
  2. CHANTIX [Suspect]
     Active Substance: VARENICLINE TARTRATE
     Dosage: 1 MG, 2X/DAY
     Route: 048
     Dates: start: 20170118

REACTIONS (4)
  - Visual impairment [Unknown]
  - Nasal neoplasm [Unknown]
  - Recalled product administered [Unknown]
  - Polyp [Unknown]

NARRATIVE: CASE EVENT DATE: 20210907
